FAERS Safety Report 8732161 (Version 2)
Quarter: 2013Q4

REPORT INFORMATION
  Report Type: Spontaneous
  Country: US (occurrence: US)
  Receive Date: 20120820
  Receipt Date: 20131101
  Transmission Date: 20140711
  Serious: No
  Sender: FDA-Public Use
  Company Number: US-009507513-1208USA005978

PATIENT
  Sex: Male

DRUGS (2)
  1. AFRIN SPRAY [Suspect]
     Indication: SWELLING
     Dosage: UNK, UNKNOWN
     Route: 045
  2. ASPIRIN [Concomitant]
     Indication: PRODUCT USED FOR UNKNOWN INDICATION
     Dosage: 2 DF, QD
     Route: 048

REACTIONS (3)
  - Dependence [Unknown]
  - Therapeutic response unexpected [Unknown]
  - Off label use [Unknown]
